FAERS Safety Report 5376793-6 (Version None)
Quarter: 2007Q3

REPORT INFORMATION
  Report Type: 
  Country: None (occurrence: None)
  Receive Date: 20070703
  Receipt Date: 20070625
  Transmission Date: 20080115
  Serious: Yes (Other)
  Sender: FDA-Public Use
  Company Number: PHBS2007BR10834

PATIENT
  Age: 64 Year
  Sex: Male
  Weight: 75 kg

DRUGS (6)
  1. TRAZODONE HYDROCHLORIDE [Concomitant]
     Indication: ARTHRALGIA
     Dosage: 50 MG, QD
     Route: 048
  2. OMEPRAZOLE [Concomitant]
     Indication: GASTRITIS
     Dosage: 20 MG, QD
     Route: 048
  3. HUMECTOL [Concomitant]
     Dosage: 1 TABLET/DAY
     Route: 048
  4. GUTALAX [Concomitant]
     Dosage: 7 DROPS/DAY
     Route: 048
  5. LIORESAL [Suspect]
     Dosage: 10 MG/DAY
     Route: 048
  6. LIORESAL [Suspect]
     Dosage: 20 MG/DAY
     Route: 048

REACTIONS (9)
  - CHOLECYSTECTOMY [None]
  - DRUG INEFFECTIVE [None]
  - DYSKINESIA [None]
  - FORMICATION [None]
  - HEPATIC PAIN [None]
  - HEPATIC STEATOSIS [None]
  - MUSCLE SPASMS [None]
  - MUSCLE SPASTICITY [None]
  - ULTRASOUND SCAN ABNORMAL [None]
